FAERS Safety Report 5441103-2 (Version None)
Quarter: 2007Q3

REPORT INFORMATION
  Report Type: 
  Country: None (occurrence: None)
  Receive Date: 20070831
  Receipt Date: 20070821
  Transmission Date: 20080115
  Serious: Yes (Death)
  Sender: FDA-Public Use
  Company Number: FR-PFIZER INC-2007064445

PATIENT
  Sex: Male

DRUGS (20)
  1. XANAX [Suspect]
     Route: 048
     Dates: start: 20070717, end: 20070717
  2. CEBUTID [Suspect]
     Route: 048
     Dates: start: 20070606, end: 20070717
  3. PAROXETINE [Suspect]
     Dosage: TEXT:1.5 DF
     Route: 048
  4. COMTAN [Suspect]
     Indication: PARKINSON'S DISEASE
     Route: 048
  5. SINEMET [Suspect]
     Dosage: TEXT:100 MG/25 MG
     Route: 048
  6. REQUIP [Suspect]
     Route: 048
  7. MODOPAR [Concomitant]
     Route: 048
  8. OMIX [Concomitant]
     Route: 048
  9. IMOVANE [Concomitant]
     Route: 048
  10. DOMPERIDONE [Concomitant]
     Route: 048
  11. PERMIXON [Concomitant]
     Route: 048
  12. INIPOMP [Concomitant]
     Route: 048
  13. REMIFENTANIL [Concomitant]
     Route: 042
     Dates: start: 20070718, end: 20070718
  14. PROPOFOL [Concomitant]
     Route: 042
     Dates: start: 20070718, end: 20070718
  15. ATROPINE [Concomitant]
     Route: 042
     Dates: start: 20070718, end: 20070718
  16. NICARDIPINE HYDROCHLORIDE [Concomitant]
     Route: 042
     Dates: start: 20070718, end: 20070718
  17. PARACETAMOL [Concomitant]
     Route: 042
     Dates: start: 20070718, end: 20070718
  18. KETOPROFEN [Concomitant]
     Route: 042
     Dates: start: 20070718, end: 20070718
  19. MORPHINE [Concomitant]
     Route: 042
     Dates: start: 20070718, end: 20070718
  20. OXACILLIN [Concomitant]
     Route: 042
     Dates: start: 20070718, end: 20070718

REACTIONS (1)
  - CEREBRAL HAEMATOMA [None]
